FAERS Safety Report 7564620-8 (Version None)
Quarter: 2011Q2

REPORT INFORMATION
  Report Type: 
  Country: None (occurrence: None)
  Receive Date: 20110622
  Receipt Date: 20100726
  Transmission Date: 20111010
  Serious: Yes (Death)
  Sender: FDA-Public Use
  Company Number: US-MYLANLABS-2010S1012410

PATIENT
  Age: 66 Year
  Sex: Female

DRUGS (13)
  1. ABILIFY [Concomitant]
     Dosage: 1 - 1 1/2
  2. LOVASTATIN [Concomitant]
  3. REMERON [Concomitant]
  4. CLOZAPINE [Suspect]
     Dates: end: 20100701
  5. HYDROCHLOROTHIAZIDE [Concomitant]
  6. DETROL [Concomitant]
  7. LISINOPRIL [Concomitant]
  8. CLOZAPINE [Suspect]
     Route: 048
     Dates: start: 20100419
  9. LITHIUM [Concomitant]
  10. PRIMIDONE [Concomitant]
  11. DIAZEPAM [Concomitant]
  12. LAMICTAL [Concomitant]
  13. EFFEXOR [Concomitant]

REACTIONS (1)
  - CARDIAC FAILURE [None]
